FAERS Safety Report 23779240 (Version 5)
Quarter: 2025Q1

REPORT INFORMATION
  Report Type: Spontaneous
  Country: US (occurrence: US)
  Receive Date: 20240424
  Receipt Date: 20250130
  Transmission Date: 20250409
  Serious: Yes (Other)
  Sender: BRISTOL-MYERS SQUIBB COMPANY
  Company Number: US-BRISTOL-MYERS SQUIBB COMPANY-2024-060347

PATIENT
  Age: 87 Year
  Sex: Female

DRUGS (3)
  1. LENALIDOMIDE [Suspect]
     Active Substance: LENALIDOMIDE
     Indication: Plasma cell myeloma
     Route: 048
     Dates: end: 202401
  2. LENALIDOMIDE [Suspect]
     Active Substance: LENALIDOMIDE
     Dosage: TAKE 1 CAPSULE BY MOUTH WITHOUT REGARD TO FOOD EVERY DAY FOR 21 DAYS IN A 28-DAY CYCLE
     Route: 048
  3. LENALIDOMIDE [Suspect]
     Active Substance: LENALIDOMIDE
     Dosage: TAKE 1 CAPSULE BY MOUTH EVERY DAY FOR 21 DAYS OF A 28 DAY CYCLE. TAKE WITHOUT REGARD TO FOOD
     Route: 048

REACTIONS (7)
  - Insurance issue [Unknown]
  - Memory impairment [Recovered/Resolved]
  - Product dose omission issue [Recovered/Resolved]
  - Therapy interrupted [Unknown]
  - Skin burning sensation [Not Recovered/Not Resolved]
  - Inappropriate schedule of product administration [Unknown]
  - Cough [Not Recovered/Not Resolved]
